FAERS Safety Report 9985252 (Version 1)
Quarter: 2014Q1

REPORT INFORMATION
  Report Type: Report from Study
  Country: US (occurrence: US)
  Receive Date: 20140307
  Receipt Date: 20140307
  Transmission Date: 20141002
  Serious: Yes (Other)
  Sender: FDA-Public Use
  Company Number: US-ABBVIE-13P-163-1185199-00

PATIENT
  Age: 69 Year
  Sex: Female
  Weight: 68.55 kg

DRUGS (19)
  1. HUMIRA [Suspect]
     Indication: PSORIATIC ARTHROPATHY
     Dates: start: 201302
  2. METHOTREXATE [Concomitant]
     Indication: PSORIATIC ARTHROPATHY
  3. ETODOLAC [Concomitant]
     Indication: ARTHRITIS
  4. AMILORIDE W/HYDROCHLOROTHIAZIDE [Concomitant]
     Indication: BLOOD PRESSURE
     Dosage: 5/50MG QD
  5. LEVOTHYROXINE [Concomitant]
     Indication: THYROID FUNCTION TEST ABNORMAL
  6. ALENDRONATE [Concomitant]
     Indication: BLOOD CALCIUM
  7. FOLBIC [Concomitant]
     Indication: VITAMIN SUPPLEMENTATION
  8. VAGIFEM [Concomitant]
     Indication: VULVOVAGINAL DRYNESS
     Route: 067
  9. MULTIVITAMIN [Concomitant]
     Indication: VITAMIN SUPPLEMENTATION
  10. CALCIUM 600MG W/VITAMIN [Concomitant]
     Indication: MINERAL SUPPLEMENTATION
  11. VITAMIN D [Concomitant]
     Indication: VITAMIN SUPPLEMENTATION
  12. NIACIN [Concomitant]
     Indication: VITAMIN SUPPLEMENTATION
  13. SELENIUM [Concomitant]
     Indication: SUPPLEMENTATION THERAPY
  14. VITAMIN E [Concomitant]
     Indication: VITAMIN SUPPLEMENTATION
  15. FISH OIL [Concomitant]
     Indication: SUPPLEMENTATION THERAPY
  16. FLAX OIL [Concomitant]
     Indication: SUPPLEMENTATION THERAPY
  17. LUTEIN [Concomitant]
     Indication: SUPPLEMENTATION THERAPY
  18. CORMAX [Concomitant]
     Indication: PRODUCT USED FOR UNKNOWN INDICATION
  19. DESONIDE [Concomitant]
     Indication: PSORIATIC ARTHROPATHY

REACTIONS (6)
  - Cholelithiasis [Recovered/Resolved]
  - Abdominal pain [Recovered/Resolved]
  - Back pain [Recovered/Resolved]
  - Cholelithiasis [Recovered/Resolved]
  - Injection site pain [Recovered/Resolved]
  - Liver function test abnormal [Recovered/Resolved]
